FAERS Safety Report 10017205 (Version 2)
Quarter: 2014Q1

REPORT INFORMATION
  Report Type: Spontaneous
  Country: JP (occurrence: JP)
  Receive Date: 20140318
  Receipt Date: 20140326
  Transmission Date: 20141002
  Serious: Yes (Other)
  Sender: FDA-Public Use
  Company Number: JP-009507513-1403JPN005643

PATIENT
  Age: 68 Year
  Sex: Female

DRUGS (5)
  1. FOSAMAC TABLETS 35MG [Suspect]
     Indication: OSTEOPOROSIS
     Dosage: 35 MG, QW
     Route: 048
     Dates: start: 20140225, end: 20140227
  2. NORVASC [Concomitant]
     Dosage: 2.5 MG, QD
     Route: 048
  3. BLOPRESS [Concomitant]
     Dosage: 4 MG, QD
     Route: 048
  4. URSO [Concomitant]
     Dosage: 3 TABLETS TID
     Route: 048
  5. BEZATOL SR [Concomitant]
     Dosage: 200 MG, QD
     Route: 048

REACTIONS (7)
  - Temporomandibular joint syndrome [Recovering/Resolving]
  - Abasia [Recovered/Resolved]
  - Pain in extremity [Recovering/Resolving]
  - Pain in extremity [Recovering/Resolving]
  - Musculoskeletal pain [Recovering/Resolving]
  - Arthralgia [Recovering/Resolving]
  - Face oedema [Recovering/Resolving]
